FAERS Safety Report 19455242 (Version 1)
Quarter: 2021Q2

REPORT INFORMATION
  Report Type: Other
  Country: US (occurrence: US)
  Receive Date: 20210623
  Receipt Date: 20210623
  Transmission Date: 20210717
  Serious: Yes (Death)
  Sender: FDA-Public Use
  Company Number: US-B.BRAUN MEDICAL INC.-2113040

PATIENT
  Age: 9 Month

DRUGS (1)
  1. NUTRILIPID I.V. FAT EMULSION [Suspect]
     Active Substance: SOYBEAN OIL
     Indication: PARENTERAL NUTRITION

REACTIONS (11)
  - Respiratory distress [Fatal]
  - Haematemesis [None]
  - Hypertriglyceridaemia [None]
  - Incorrect product administration duration [Fatal]
  - Epistaxis [Fatal]
  - Hypotension [Fatal]
  - Acute respiratory distress syndrome [Fatal]
  - Haemorrhage [Fatal]
  - Product administration error [None]
  - Lactic acidosis [Fatal]
  - Cardiac arrest [Fatal]
